FAERS Safety Report 8187788-1 (Version None)
Quarter: 2012Q1

REPORT INFORMATION
  Report Type: 
  Country: None (occurrence: None)
  Receive Date: 20120306
  Receipt Date: 20120229
  Transmission Date: 20120608
  Serious: Yes (Other)
  Sender: FDA-Public Use
  Company Number: BR-ROCHE-1032714

PATIENT
  Sex: Female
  Weight: 86 kg

DRUGS (8)
  1. CLOBAZAM [Concomitant]
  2. HYDROCHLOROTHIAZIDE [Concomitant]
  3. MABTHERA [Suspect]
     Indication: RHEUMATOID ARTHRITIS
     Route: 042
     Dates: start: 20100601, end: 20110908
  4. TEGRETOL [Concomitant]
  5. OXCARBAZEPINE [Concomitant]
  6. CITRULLINE [Concomitant]
  7. ENALAPRIL MALEATE [Concomitant]
  8. CORTICOSTEROID NOS [Concomitant]

REACTIONS (6)
  - SYNCOPE [None]
  - ASTHENIA [None]
  - DIZZINESS [None]
  - FORMICATION [None]
  - HYPERTENSION [None]
  - VOMITING [None]
